FAERS Safety Report 6843829-2 (Version None)
Quarter: 2010Q3

REPORT INFORMATION
  Report Type: 
  Country: None (occurrence: None)
  Receive Date: 20100715
  Receipt Date: 20100701
  Transmission Date: 20110219
  Serious: Yes (Hospitalization, Other)
  Sender: FDA-Public Use
  Company Number: PHHY2010MX39533

PATIENT
  Sex: Male

DRUGS (2)
  1. DIOVAN HCT [Suspect]
     Indication: HYPERTENSION
     Dosage: 1 TABLET (160/12.5 MG) DAILY BY MOUTH
     Route: 048
     Dates: start: 20070110, end: 20100615
  2. GALVUS MET [Concomitant]
     Indication: DIABETES MELLITUS
     Dosage: 1 TABLET DAILY
     Route: 048
     Dates: start: 20080601

REACTIONS (5)
  - BLOOD PRESSURE INCREASED [None]
  - CATARACT OPERATION [None]
  - FATIGUE [None]
  - PHOSPHENES [None]
  - TINNITUS [None]
